FAERS Safety Report 10402475 (Version 3)
Quarter: 2014Q3

REPORT INFORMATION
  Report Type: Report from Study
  Country: US (occurrence: US)
  Receive Date: 20140822
  Receipt Date: 20140917
  Transmission Date: 20150326
  Serious: Yes (Hospitalization)
  Sender: FDA-Public Use
  Company Number: US-BAYER-2014-108882

PATIENT
  Age: 63 Year
  Sex: Male

DRUGS (2)
  1. STIVARGA [Suspect]
     Active Substance: REGORAFENIB
     Indication: COLON CANCER
     Dosage: 160 MG, DAILY
     Route: 048
     Dates: end: 20140716
  2. STIVARGA [Suspect]
     Active Substance: REGORAFENIB
     Indication: COLON CANCER
     Dosage: 80 MG, DAILY, FOR 2 MONTHS
     Route: 048

REACTIONS (10)
  - Arrhythmia [None]
  - Decreased appetite [None]
  - Pain in extremity [None]
  - Blister [None]
  - Confusional state [None]
  - Urinary tract infection [None]
  - Paraesthesia [None]
  - Pneumonia [None]
  - Kidney infection [None]
  - Peripheral swelling [None]

NARRATIVE: CASE EVENT DATE: 201407
